FAERS Safety Report 8601443 (Version 3)
Quarter: 2012Q4

REPORT INFORMATION
  Report Type: 
  Country: BR (occurrence: BR)
  Receive Date: 20120606
  Receipt Date: 20121108
  Transmission Date: 20130627
  Serious: Yes (Life-Threatening, Hospitalization, Disabling)
  Sender: FDA-Public Use
  Company Number: BR-INCYTE CORPORATION-2012IN000921

PATIENT
  Age: 56 Year
  Sex: Female
  Weight: 69 kg

DRUGS (7)
  1. INC424 [Suspect]
     Indication: MYELOFIBROSIS
     Dosage: 15 mg, bid
     Route: 048
     Dates: start: 20120106, end: 20120521
  2. DIPIRONA [Concomitant]
     Dosage: UNK
     Dates: start: 20050101
  3. FLUOXETINE [Concomitant]
     Dosage: UNK
     Dates: start: 20010101
  4. DIAZEPAM [Concomitant]
     Dosage: UNK
     Dates: start: 20050101
  5. METADON [Concomitant]
     Dosage: UNK
     Dates: start: 20110720
  6. OMEPRAZOLE [Concomitant]
     Dosage: UNK
     Dates: start: 20111230
  7. HYDROCHLOROTHIAZIDE [Concomitant]
     Dosage: UNK
     Dates: start: 20120302

REACTIONS (4)
  - Dyspnoea [Recovered/Resolved]
  - Anaemia [Unknown]
  - Respiratory distress [Recovered/Resolved]
  - Asthenia [Unknown]
